FAERS Safety Report 8715686 (Version 3)
Quarter: 2012Q4

REPORT INFORMATION
  Report Type: Report from Study
  Country: DE (occurrence: DE)
  Receive Date: 20120809
  Receipt Date: 20121128
  Transmission Date: 20130627
  Serious: Yes (Hospitalization, Other)
  Sender: FDA-Public Use
  Company Number: DE-ABBOTT-12P-062-0963479-00

PATIENT
  Age: 69 Year
  Sex: Male
  Weight: 86 kg

DRUGS (4)
  1. HUMIRA [Suspect]
     Indication: PSORIASIS
     Route: 058
     Dates: start: 20081202, end: 20081202
  2. HUMIRA [Suspect]
     Route: 058
     Dates: start: 20100202, end: 20120721
  3. ALLOPURINOL [Concomitant]
     Indication: GOUT
     Dates: start: 2004
  4. HCT [Concomitant]
     Indication: HYPERTENSION
     Dates: start: 200712

REACTIONS (1)
  - Bladder transitional cell carcinoma stage II [Recovered/Resolved]
